FAERS Safety Report 8404864 (Version 3)
Quarter: 2013Q1

REPORT INFORMATION
  Report Type: Report from Study
  Country: CH (occurrence: CH)
  Receive Date: 20120214
  Receipt Date: 20130226
  Transmission Date: 20140127
  Serious: Yes (Other)
  Sender: FDA-Public Use
  Company Number: CH-ROCHE-786283

PATIENT
  Age: 39 Year
  Sex: Female
  Weight: 57.3 kg

DRUGS (7)
  1. VEMURAFENIB [Suspect]
     Indication: MALIGNANT MELANOMA
     Dosage: DATE OF LAST DOSE PRIOR TO SAE:17/JUN/2012
     Route: 048
  2. MEFENACID [Concomitant]
     Route: 065
     Dates: start: 20120722
  3. RECANCOSTAT [Concomitant]
     Dosage: FREQ: 1-0-0
     Route: 065
  4. ZOMETA [Concomitant]
     Route: 065
  5. IMODIUM [Concomitant]
     Route: 065
  6. HEILERDE [Concomitant]
     Route: 065
     Dates: start: 201101
  7. PANTOZOL [Concomitant]
     Route: 065
     Dates: start: 20120717

REACTIONS (2)
  - Malignant melanoma [Recovered/Resolved]
  - Papilloma [Recovered/Resolved]
